FAERS Safety Report 22779108 (Version 6)
Quarter: 2023Q4

REPORT INFORMATION
  Report Type: Spontaneous
  Country: US (occurrence: US)
  Receive Date: 20230802
  Receipt Date: 20231201
  Transmission Date: 20240109
  Serious: Yes (Hospitalization, Other)
  Sender: FDA-Public Use
  Company Number: US-Calliditas-2023CAL00930

PATIENT
  Age: 65 Year
  Sex: Male
  Weight: 82.5 kg

DRUGS (6)
  1. TARPEYO [Suspect]
     Active Substance: BUDESONIDE
     Indication: IgA nephropathy
     Dosage: 16 MG (4 MG CAPSULES) ONCE DAILY
     Route: 050
     Dates: start: 20221117, end: 20231024
  2. FARXIGA [Suspect]
     Active Substance: DAPAGLIFLOZIN PROPANEDIOL
     Indication: Product used for unknown indication
  3. FISH OIL [Concomitant]
     Active Substance: FISH OIL
  4. LOSARTAN [Concomitant]
     Active Substance: LOSARTAN
  5. LOVASTATIN [Concomitant]
     Active Substance: LOVASTATIN
  6. CALCITRIOL [Concomitant]
     Active Substance: CALCITRIOL

REACTIONS (12)
  - Gout [Recovering/Resolving]
  - Foot fracture [Recovering/Resolving]
  - Ketoacidosis [Recovered/Resolved]
  - Contusion [Unknown]
  - Peripheral swelling [Not Recovered/Not Resolved]
  - Influenza [Recovered/Resolved]
  - Pericardial effusion [Unknown]
  - Pollakiuria [Unknown]
  - Vomiting [Recovered/Resolved]
  - Nausea [Recovered/Resolved]
  - Therapy interrupted [Recovered/Resolved]
  - Weight decreased [Recovered/Resolved]

NARRATIVE: CASE EVENT DATE: 20230805
